FAERS Safety Report 20494246 (Version 2)
Quarter: 2022Q1

REPORT INFORMATION
  Report Type: Report from Study
  Country: US (occurrence: None)
  Receive Date: 20220221
  Receipt Date: 20220317
  Transmission Date: 20220424
  Serious: Yes (Hospitalization)
  Sender: FDA-Public Use
  Company Number: US-Merck Healthcare KGaA-9300910

PATIENT
  Sex: Female

DRUGS (1)
  1. REBIF [Suspect]
     Active Substance: INTERFERON BETA-1A
     Indication: Multiple sclerosis
     Route: 058
     Dates: start: 20120105

REACTIONS (5)
  - Nephrolithiasis [Recovering/Resolving]
  - Urosepsis [Recovering/Resolving]
  - Feeling abnormal [Unknown]
  - Blood glucose increased [Recovering/Resolving]
  - Asthenia [Unknown]
